FAERS Safety Report 6818138-8 (Version None)
Quarter: 2010Q3

REPORT INFORMATION
  Report Type: 
  Country: None (occurrence: None)
  Receive Date: 20100706
  Receipt Date: 20100625
  Transmission Date: 20110219
  Serious: Yes (Life-Threatening, Hospitalization, Other)
  Sender: FDA-Public Use
  Company Number: US-PFIZER INC-2010042917

PATIENT
  Sex: Female
  Weight: 71.655 kg

DRUGS (5)
  1. CHANTIX [Suspect]
     Indication: SMOKING CESSATION THERAPY
     Dosage: 0.5 MG, 1X/DAY
     Route: 048
     Dates: start: 20100326, end: 20100401
  2. CHANTIX [Suspect]
     Indication: HYPERSENSITIVITY
     Dosage: UNK
     Dates: start: 20100401
  3. LOVASTATIN [Concomitant]
     Indication: BLOOD CHOLESTEROL INCREASED
     Dosage: 10 MG, AT BEDTIME
  4. METOPROLOL [Concomitant]
     Dosage: 25 MG, 2X/DAY
  5. IBUPROFEN [Concomitant]
     Dosage: 800 MG, AS NEEDED

REACTIONS (15)
  - BLISTER [None]
  - CHEST PAIN [None]
  - CHILLS [None]
  - ERYTHEMA [None]
  - IMPAIRED WORK ABILITY [None]
  - LOCAL SWELLING [None]
  - OEDEMA PERIPHERAL [None]
  - OROPHARYNGEAL BLISTERING [None]
  - OROPHARYNGEAL PAIN [None]
  - PAIN [None]
  - PYREXIA [None]
  - SPEECH DISORDER [None]
  - URTICARIA [None]
  - WHITE BLOOD CELL COUNT INCREASED [None]
  - WRONG TECHNIQUE IN DRUG USAGE PROCESS [None]
